FAERS Safety Report 7822889-6 (Version None)
Quarter: 2011Q4

REPORT INFORMATION
  Report Type: 
  Country: None (occurrence: None)
  Receive Date: 20111018
  Receipt Date: 20101104
  Transmission Date: 20120403
  Serious: No
  Sender: FDA-Public Use
  Company Number: US-ASTRAZENECA-2010SE52574

PATIENT
  Age: 71 Year
  Sex: Female
  Weight: 99.3 kg

DRUGS (1)
  1. SYMBICORT [Suspect]
     Indication: ASTHMA
     Dosage: 640 MCG BID
     Route: 055

REACTIONS (2)
  - GINGIVAL ABSCESS [None]
  - KIDNEY INFECTION [None]
